FAERS Safety Report 6841585-5 (Version None)
Quarter: 2010Q3

REPORT INFORMATION
  Report Type: 
  Country: None (occurrence: None)
  Receive Date: 20100714
  Receipt Date: 20070709
  Transmission Date: 20110219
  Serious: No
  Sender: FDA-Public Use
  Company Number: US-PFIZER INC-2007057798

PATIENT
  Sex: Male
  Weight: 79.5 kg

DRUGS (2)
  1. CHANTIX [Suspect]
     Indication: SMOKING CESSATION THERAPY
     Dates: start: 20070619, end: 20070624
  2. MAGNESIUM [Concomitant]
     Indication: HYPERCHLORHYDRIA

REACTIONS (4)
  - FLATULENCE [None]
  - HEADACHE [None]
  - MALAISE [None]
  - VOMITING [None]
